FAERS Safety Report 12157135 (Version 2)
Quarter: 2016Q2

REPORT INFORMATION
  Report Type: Spontaneous
  Country: TR (occurrence: TR)
  Receive Date: 20160307
  Receipt Date: 20160411
  Transmission Date: 20160815
  Serious: Yes (Death, Other)
  Sender: FDA-Public Use
  Company Number: PHHY2016TR027787

PATIENT
  Age: 18 Hour
  Sex: Male

DRUGS (1)
  1. DIGOXIN. [Suspect]
     Active Substance: DIGOXIN
     Indication: FOETAL EXPOSURE DURING PREGNANCY
     Dosage: UNK
     Route: 064

REACTIONS (8)
  - Neonatal tachycardia [Fatal]
  - Foetal exposure during pregnancy [Unknown]
  - Low birth weight baby [Unknown]
  - Condition aggravated [Fatal]
  - Neonatal respiratory acidosis [Unknown]
  - Neonatal anuria [Unknown]
  - Cardiac failure [Fatal]
  - Neonatal tachypnoea [Fatal]
